FAERS Safety Report 5999125-9 (Version None)
Quarter: 2008Q4

REPORT INFORMATION
  Report Type: 
  Country: None (occurrence: None)
  Receive Date: 20081215
  Receipt Date: 20081203
  Transmission Date: 20090506
  Serious: Yes (Hospitalization, Other)
  Sender: FDA-Public Use
  Company Number: US-PFIZER INC-2008101523

PATIENT
  Age: 44 Year
  Sex: Male
  Weight: 71 kg

DRUGS (4)
  1. SUNITINIB MALATE [Suspect]
     Indication: NON-SMALL CELL LUNG CANCER
     Dosage: 37.5 MG, 1X/DAY
     Route: 048
     Dates: start: 20080904, end: 20081028
  2. PEMETREXED [Suspect]
     Indication: NON-SMALL CELL LUNG CANCER
     Dosage: 500 MG/M2 OVER 10 MIN ON DAY 1
     Route: 042
     Dates: start: 20080904, end: 20081023
  3. FENTANYL CITRATE [Suspect]
  4. OXYCODONE [Suspect]

REACTIONS (7)
  - CONFUSIONAL STATE [None]
  - CONSTIPATION [None]
  - COUGH [None]
  - DYSPNOEA [None]
  - EMBOLISM [None]
  - OEDEMA PERIPHERAL [None]
  - PAIN [None]
